FAERS Safety Report 26060064 (Version 1)
Quarter: 2025Q4

REPORT INFORMATION
  Report Type: Spontaneous
  Country: GB (occurrence: GB)
  Receive Date: 20251118
  Receipt Date: 20251118
  Transmission Date: 20260117
  Serious: Yes (Other)
  Sender: ALCON
  Company Number: GB-ALCON LABORATORIES-ALC2025GB006580

PATIENT
  Age: 61 Year
  Sex: Female

DRUGS (1)
  1. ROCKLATAN [Suspect]
     Active Substance: LATANOPROST\NETARSUDIL MESYLATE
     Indication: Glaucoma
     Dosage: 1 DROP IN EACH EYE, QD
     Route: 047
     Dates: start: 20251020, end: 20251106

REACTIONS (4)
  - Back pain [Not Recovered/Not Resolved]
  - Myalgia [Unknown]
  - Muscular weakness [Unknown]
  - Fatigue [Unknown]

NARRATIVE: CASE EVENT DATE: 20251101
